FAERS Safety Report 12979957 (Version 1)
Quarter: 2016Q4

REPORT INFORMATION
  Report Type: Spontaneous
  Country: US (occurrence: US)
  Receive Date: 20161128
  Receipt Date: 20161128
  Transmission Date: 20170207
  Serious: No
  Sender: FDA-Public Use
  Company Number: US-SUPERNUS PHARMACEUTICALS, INC.-2016SUP00170

PATIENT

DRUGS (1)
  1. TROKENDI XR [Suspect]
     Active Substance: TOPIRAMATE

REACTIONS (1)
  - White blood cell count decreased [Unknown]
